FAERS Safety Report 9229039 (Version 1)
Quarter: 2013Q2

REPORT INFORMATION
  Report Type: Spontaneous
  Country: US (occurrence: US)
  Receive Date: 20130412
  Receipt Date: 20130412
  Transmission Date: 20140414
  Serious: Yes (Other)
  Sender: FDA-Public Use
  Company Number: CHPA2013US006196

PATIENT
  Age: 75 Year
  Sex: Female

DRUGS (2)
  1. VOLTAREN GEL [Suspect]
     Indication: ARTHRALGIA
     Dosage: UNK, QID PRN
     Route: 061
     Dates: start: 2012
  2. LIDODERM [Concomitant]

REACTIONS (2)
  - Arthritis [Unknown]
  - Back pain [Unknown]
